FAERS Safety Report 16250589 (Version 1)
Quarter: 2019Q2

REPORT INFORMATION
  Report Type: Spontaneous
  Country: US (occurrence: US)
  Receive Date: 20190325
  Receipt Date: 20190325
  Transmission Date: 20190711
  Serious: No
  Sender: FDA-Public Use
  Company Number: None

PATIENT
  Age: 33 Year
  Sex: Female

DRUGS (1)
  1. HYDROXYPROGESTERONE 250MG/ML (1ML SDV) [Suspect]
     Active Substance: HYDROXYPROGESTERONE
     Dates: start: 20190124

REACTIONS (4)
  - Back pain [None]
  - Pain [None]
  - Injection site pain [None]
  - Pain in extremity [None]

NARRATIVE: CASE EVENT DATE: 20190124
